FAERS Safety Report 8089297-7 (Version None)
Quarter: 2012Q1

REPORT INFORMATION
  Report Type: 
  Country: None (occurrence: None)
  Receive Date: 20120128
  Receipt Date: 20110715
  Transmission Date: 20120608
  Serious: No
  Sender: FDA-Public Use
  Company Number: US-ABBOTT-11P-163-0721243-00

PATIENT
  Sex: Female

DRUGS (2)
  1. HUMIRA [Suspect]
     Indication: CROHN'S DISEASE
     Dosage: LOADING DOSE
     Dates: start: 20110413
  2. HUMIRA [Suspect]
     Dates: start: 20110413

REACTIONS (9)
  - HYPOAESTHESIA [None]
  - PARAESTHESIA [None]
  - DIZZINESS [None]
  - WEIGHT DECREASED [None]
  - ASTHENIA [None]
  - CONSTIPATION [None]
  - VISUAL IMPAIRMENT [None]
  - COUGH [None]
  - NERVOUSNESS [None]
